FAERS Safety Report 5030906-4 (Version None)
Quarter: 2006Q2

REPORT INFORMATION
  Report Type: 
  Country: None (occurrence: None)
  Receive Date: 20060504
  Receipt Date: 20060228
  Transmission Date: 20061013
  Serious: No
  Sender: FDA-Public Use
  Company Number: 200610036BWH

PATIENT
  Age: 73 Year
  Sex: Male

DRUGS (4)
  1. LEVITRA [Suspect]
     Indication: ERECTILE DYSFUNCTION
     Dosage: 10 MG, BID, ORAL
     Route: 048
     Dates: start: 20051228
  2. SIMVASTATIN [Concomitant]
  3. ZETIA [Concomitant]
  4. CHLORTHALIDONE [Concomitant]

REACTIONS (2)
  - ERECTILE DYSFUNCTION [None]
  - SPONTANEOUS PENILE ERECTION [None]
